FAERS Safety Report 10418734 (Version 1)
Quarter: 2014Q2

REPORT INFORMATION
  Report Type: Spontaneous
  Country: US (occurrence: None)
  Receive Date: 20140617
  Receipt Date: 20140617
  Transmission Date: 20141212
  Serious: Yes (Other)
  Sender: FDA-Public Use
  Company Number: 1269202

PATIENT
  Age: 18 Year
  Sex: Male

DRUGS (11)
  1. ACTEMRA [Suspect]
     Indication: JUVENILE IDIOPATHIC ARTHRITIS
     Dosage: 500 MG (500MG/KG), INTRAVENOUS (NOT OTHERWISE SPECIFIED)?
     Route: 042
     Dates: start: 20130703
  2. HYDROCORTISONE SODIUM SUCCINATE [Concomitant]
  3. BENADRYL (UNITED STATES) (DIPHENHYDRAMINE HYDROCHLORIDE) [Concomitant]
  4. ZANTAC (RANITIDINE HYDROCHLORIDE) [Concomitant]
  5. OXYGEN [Concomitant]
  6. ALBUTEROL NEBULIZER (SALBUTAMOL/SALBUTAMOL SULFATE) [Concomitant]
  7. METHOTREXATE [Concomitant]
  8. PREDNISONE [Concomitant]
  9. IBUPROFEN [Concomitant]
  10. BACTRIM (SULFAMETHOXAZOLE, TRIMETHOPRIM) [Concomitant]
  11. FOLIC ACID [Concomitant]

REACTIONS (1)
  - Anaphylactic reaction [None]
